FAERS Safety Report 10009564 (Version 3)
Quarter: 2014Q2

REPORT INFORMATION
  Report Type: Spontaneous
  Country: AT (occurrence: AT)
  Receive Date: 20140313
  Receipt Date: 20140521
  Transmission Date: 20141212
  Serious: Yes (Other)
  Sender: FDA-Public Use
  Company Number: AT-ASTRAZENECA-2014SE15857

PATIENT
  Age: 48 Year
  Sex: Female

DRUGS (8)
  1. TAMOXIFEN [Suspect]
     Route: 048
     Dates: start: 2005, end: 200807
  2. ANASTROZOL [Suspect]
     Route: 048
  3. FASLODEX [Suspect]
     Route: 030
     Dates: start: 201208
  4. GOSERELIN [Suspect]
     Route: 058
     Dates: end: 200807
  5. XELODA [Suspect]
     Dates: end: 201208
  6. FARLUTAL [Suspect]
  7. ANTHRAZYCLINE [Concomitant]
  8. TAXAN [Concomitant]

REACTIONS (7)
  - Metastases to lymph nodes [Unknown]
  - Cardiac failure [Unknown]
  - Device related sepsis [Unknown]
  - Breast cancer recurrent [Unknown]
  - Exposure during pregnancy [Recovered/Resolved]
  - Lymphoedema [Unknown]
  - Malignant neoplasm progression [Unknown]
